FAERS Safety Report 24212190 (Version 1)
Quarter: 2024Q3

REPORT INFORMATION
  Report Type: Report from Study
  Country: US (occurrence: US)
  Receive Date: 20240815
  Receipt Date: 20240815
  Transmission Date: 20241016
  Serious: Yes (Hospitalization)
  Sender: ROCHE
  Company Number: US-ROCHE-10000051820

PATIENT
  Age: 75 Year
  Sex: Female
  Weight: 89.81 kg

DRUGS (1)
  1. RITUXAN [Suspect]
     Active Substance: RITUXIMAB
     Indication: Rheumatoid arthritis
     Route: 042
     Dates: start: 202309, end: 20231006

REACTIONS (2)
  - Atrial fibrillation [Unknown]
  - Stevens-Johnson syndrome [Unknown]
